FAERS Safety Report 8553905 (Version 2)
Quarter: 2012Q4

REPORT INFORMATION
  Report Type: Spontaneous
  Country: US (occurrence: None)
  Receive Date: 20120502
  Receipt Date: 20120912
  Transmission Date: 20130627
  Serious: Yes (Other)
  Sender: FDA-Public Use
  Company Number: AXC-2012-000212

PATIENT
  Age: 8 Year
  Sex: Female
  Weight: 23.9 kg

DRUGS (2)
  1. ZENPEP [Suspect]
     Indication: CYSTIC FIBROSIS
     Route: 048
     Dates: start: 201012, end: 20120412
  2. ZENPEP [Suspect]
     Indication: PANCREATIC INSUFFICIENCY
     Route: 048
     Dates: start: 201012, end: 20120412

REACTIONS (4)
  - WEIGHT GAIN POOR [None]
  - BODY MASS INDEX DECREASED [None]
  - DECREASED APPETITE [None]
  - PSEUDOMONAS INFECTION [None]
